FAERS Safety Report 7693651-2 (Version None)
Quarter: 2011Q3

REPORT INFORMATION
  Report Type: 
  Country: None (occurrence: None)
  Receive Date: 20110819
  Receipt Date: 20110808
  Transmission Date: 20111222
  Serious: Yes (Death)
  Sender: FDA-Public Use
  Company Number: JP-ROCHE-794487

PATIENT
  Age: 63 Year
  Sex: Male
  Weight: 52 kg

DRUGS (44)
  1. XELODA [Suspect]
     Route: 048
     Dates: start: 20110701, end: 20110715
  2. OXALIPLATIN [Suspect]
     Indication: COLON CANCER METASTATIC
     Dosage: DOSE : 130 MG/M2
     Route: 041
     Dates: start: 20110427, end: 20110427
  3. VITAMIN A [Concomitant]
     Dosage: DRUG : SAHNE (VITAMIN A OIL) CREAM.  PROPER QUANTITY
     Route: 003
     Dates: start: 20110426
  4. FENTANYL [Concomitant]
     Route: 062
     Dates: start: 20110506, end: 20110701
  5. XELODA [Suspect]
     Indication: COLON CANCER METASTATIC
     Dosage: DRUG REPORTED AS : XELODA 300
     Route: 048
     Dates: start: 20110427, end: 20110511
  6. OXALIPLATIN [Suspect]
     Route: 041
     Dates: start: 20110520, end: 20110520
  7. FAMOTIDINE [Concomitant]
     Route: 048
     Dates: start: 20110427, end: 20110609
  8. EMEND [Concomitant]
     Route: 048
     Dates: start: 20110722, end: 20110723
  9. XELODA [Suspect]
     Route: 048
     Dates: start: 20110520, end: 20110603
  10. AVASTIN [Suspect]
     Indication: COLON CANCER METASTATIC
     Route: 041
     Dates: start: 20110427, end: 20110427
  11. OXALIPLATIN [Suspect]
     Route: 041
     Dates: start: 20110722, end: 20110722
  12. EMEND [Concomitant]
     Route: 048
     Dates: start: 20110610, end: 20110610
  13. MAGNESIUM OXIDE [Concomitant]
     Route: 048
     Dates: end: 20110519
  14. FAMOTIDINE [Concomitant]
     Route: 048
     Dates: start: 20110610, end: 20110701
  15. EMEND [Concomitant]
     Route: 048
     Dates: start: 20110428, end: 20110428
  16. EMEND [Concomitant]
     Route: 048
     Dates: start: 20110701, end: 20110702
  17. DECADRON [Concomitant]
     Route: 048
     Dates: start: 20110610, end: 20110611
  18. DECADRON [Concomitant]
     Route: 048
     Dates: start: 20110722, end: 20110723
  19. NAUZELIN [Concomitant]
     Route: 048
     Dates: start: 20110428, end: 20110504
  20. CANDESARTAN CILEXETIL [Concomitant]
     Route: 048
     Dates: start: 20110520, end: 20110701
  21. DECADRON [Concomitant]
     Route: 041
     Dates: start: 20110722, end: 20110722
  22. XELODA [Suspect]
     Route: 048
     Dates: start: 20110610, end: 20110624
  23. HIRUDOID [Concomitant]
     Dosage: CREAM.  PROPER QUANTITY
     Route: 003
     Dates: start: 20110427, end: 20110701
  24. EMEND [Concomitant]
     Route: 048
     Dates: start: 20110722, end: 20110722
  25. DECADRON [Concomitant]
     Route: 048
     Dates: start: 20110520, end: 20110521
  26. PRAVASTATIN SODIUM [Concomitant]
     Route: 048
     Dates: start: 20110701, end: 20110701
  27. OXALIPLATIN [Suspect]
     Route: 041
     Dates: start: 20110701, end: 20110701
  28. EMEND [Concomitant]
     Route: 048
     Dates: start: 20110427, end: 20110427
  29. KYTRIL [Concomitant]
     Route: 048
     Dates: start: 20110428, end: 20110428
  30. DECADRON [Concomitant]
     Route: 048
     Dates: start: 20110428, end: 20110429
  31. DECADRON [Concomitant]
     Route: 048
     Dates: start: 20110701, end: 20110702
  32. XELODA [Suspect]
     Dosage: DRUG STOPPED IN : JULY 2011
     Route: 048
     Dates: start: 20110722
  33. OXALIPLATIN [Suspect]
     Route: 041
     Dates: start: 20110610, end: 20110610
  34. WHITE PETROLEUM JELLY [Concomitant]
     Dosage: PROPER QUANTITY
     Route: 003
     Dates: start: 20110426
  35. EMEND [Concomitant]
     Route: 048
     Dates: start: 20110520, end: 20110520
  36. EMEND [Concomitant]
     Route: 048
     Dates: start: 20110520, end: 20110521
  37. EMEND [Concomitant]
     Route: 048
     Dates: start: 20110701, end: 20110701
  38. CHLOR-TRIMETON [Concomitant]
     Route: 041
     Dates: start: 20110722, end: 20110722
  39. KYTRIL [Concomitant]
     Route: 041
     Dates: start: 20110722, end: 20110722
  40. AVASTIN [Suspect]
     Route: 041
     Dates: start: 20110610, end: 20110610
  41. AMOBAN [Concomitant]
     Dosage: WHEN IT IS NOT POSSIBLE TO SLEEP
     Route: 048
  42. EMEND [Concomitant]
     Route: 048
     Dates: start: 20110610, end: 20110611
  43. FENTANYL [Concomitant]
     Dosage: FORM : TAPE
     Route: 062
     Dates: start: 20110428, end: 20110503
  44. FENTANYL [Concomitant]
     Route: 062
     Dates: start: 20110501, end: 20110506

REACTIONS (5)
  - DEATH [None]
  - DISEASE PROGRESSION [None]
  - PALMAR-PLANTAR ERYTHRODYSAESTHESIA SYNDROME [None]
  - HAEMATOTOXICITY [None]
  - HYPERTENSION [None]
